FAERS Safety Report 6539647-5 (Version None)
Quarter: 2010Q1

REPORT INFORMATION
  Report Type: 
  Country: None (occurrence: None)
  Receive Date: 20100115
  Receipt Date: 20100113
  Transmission Date: 20100710
  Serious: Yes (Hospitalization)
  Sender: FDA-Public Use
  Company Number: DE-BRISTOL-MYERS SQUIBB COMPANY-14931570

PATIENT
  Sex: Female

DRUGS (2)
  1. ABILIFY [Suspect]
     Indication: SCHIZOPHRENIA
     Dosage: JAN2010:10MG/DAY 11-JAN-2010:378 NG/ML
     Route: 048
     Dates: start: 20091001
  2. LEPONEX [Suspect]
     Indication: SCHIZOPHRENIA
     Dosage: 11-JAN-2010 6.0 NG/ML
     Dates: start: 20060101

REACTIONS (4)
  - ASPIRATION [None]
  - MUSCLE SPASMS [None]
  - PERSONALITY CHANGE [None]
  - SUICIDE ATTEMPT [None]
